FAERS Safety Report 8016866-2 (Version None)
Quarter: 2012Q1

REPORT INFORMATION
  Report Type: 
  Country: None (occurrence: None)
  Receive Date: 20120102
  Receipt Date: 20111221
  Transmission Date: 20120608
  Serious: Yes (Other)
  Sender: FDA-Public Use
  Company Number: PHEH2011US012288

PATIENT
  Sex: Male
  Weight: 119 kg

DRUGS (8)
  1. ZORTRESS [Suspect]
     Indication: RENAL TRANSPLANT
     Dosage: 0.5 MG, BID
     Route: 048
     Dates: start: 20010401
  2. CERTICAN [Concomitant]
     Indication: TRANSPLANT
     Dosage: 3 MG, BID
     Dates: start: 20070401
  3. PLAVIX [Concomitant]
     Dosage: UNK UKN, UNK
  4. NEORAL [Concomitant]
     Indication: TRANSPLANT
     Dosage: 100 MG, BID
  5. LISINOPRIL [Concomitant]
     Dosage: 4.0 MG, BID
     Dates: start: 20071001
  6. CLONIDINE [Concomitant]
     Dosage: UNK UKN, UNK
  7. LASIX [Concomitant]
     Dosage: UNK UKN, UNK
  8. PREDNISONE [Concomitant]
     Indication: TRANSPLANT
     Dosage: 2.5 MG, UNK
     Dates: start: 20070401

REACTIONS (3)
  - BLOOD ALDOSTERONE DECREASED [None]
  - HYPERKALAEMIA [None]
  - RENAL TUBULAR ACIDOSIS [None]
